FAERS Safety Report 17721119 (Version 1)
Quarter: 2020Q2

REPORT INFORMATION
  Report Type: Report from Study
  Country: None (occurrence: DE)
  Receive Date: 20200429
  Receipt Date: 20200429
  Transmission Date: 20200714
  Serious: Yes (Other)
  Sender: FDA-Public Use
  Company Number: DE-ABBVIE-20K-062-3380829-00

PATIENT
  Sex: Male

DRUGS (10)
  1. MADOPAR DEPOT [Concomitant]
     Active Substance: BENSERAZIDE HYDROCHLORIDE\LEVODOPA
     Indication: PRODUCT USED FOR UNKNOWN INDICATION
  2. NIFURANTIN B6 [Concomitant]
     Indication: PRODUCT USED FOR UNKNOWN INDICATION
  3. XIPAMID [Concomitant]
     Active Substance: XIPAMIDE
     Indication: PRODUCT USED FOR UNKNOWN INDICATION
  4. FUROSEMID [Concomitant]
     Active Substance: FUROSEMIDE
     Indication: PRODUCT USED FOR UNKNOWN INDICATION
  5. IBUFLAM [Concomitant]
     Indication: PRODUCT USED FOR UNKNOWN INDICATION
  6. DUODOPA [Suspect]
     Active Substance: CARBIDOPA\LEVODOPA
     Indication: PARKINSON^S DISEASE
     Dosage: MD 8.0ML, CRD 3.3ML/H, ED 2.0ML
     Route: 050
     Dates: start: 20181017
  7. KALINOR RETARD [Concomitant]
     Active Substance: POTASSIUM CHLORIDE
     Indication: PRODUCT USED FOR UNKNOWN INDICATION
  8. OPICAPONE [Concomitant]
     Active Substance: OPICAPONE
     Indication: PRODUCT USED FOR UNKNOWN INDICATION
  9. SPASMEX [Concomitant]
     Indication: PRODUCT USED FOR UNKNOWN INDICATION
  10. PANTOPRAZOL [Concomitant]
     Active Substance: PANTOPRAZOLE SODIUM
     Indication: PRODUCT USED FOR UNKNOWN INDICATION

REACTIONS (2)
  - Bladder cancer [Not Recovered/Not Resolved]
  - Urogenital disorder [Not Recovered/Not Resolved]
